FAERS Safety Report 17533609 (Version 4)
Quarter: 2020Q4

REPORT INFORMATION
  Report Type: Spontaneous
  Country: US (occurrence: US)
  Receive Date: 20200312
  Receipt Date: 20201209
  Transmission Date: 20210113
  Serious: Yes (Hospitalization)
  Sender: FDA-Public Use
  Company Number: US-PFIZER INC-2019385504

PATIENT
  Age: 86 Year
  Sex: Male
  Weight: 87.52 kg

DRUGS (3)
  1. VYNDAQEL [Suspect]
     Active Substance: TAFAMIDIS MEGLUMINE
     Indication: CARDIAC DISORDER
     Dosage: 80 MG, 1X/DAY (20MG. 4 CAPSULES EACH MORNING BY MOUTH. 80 MG DAILY)
     Route: 048
  2. VYNDAQEL [Suspect]
     Active Substance: TAFAMIDIS MEGLUMINE
     Indication: CARDIAC AMYLOIDOSIS
     Dosage: 80 MG, 1X/DAY (20MG. 4 CAPSULES EACH MORNING BY MOUTH. 80 MG DAILY)
     Route: 048
     Dates: start: 2018
  3. BUMETANIDE. [Concomitant]
     Active Substance: BUMETANIDE
     Indication: FLUID RETENTION
     Dosage: 2 MG, UNK

REACTIONS (5)
  - Abdominal pain [Recovered/Resolved]
  - Faecaloma [Recovered/Resolved]
  - Pneumonia [Recovering/Resolving]
  - Constipation [Recovered/Resolved]
  - Abdominal discomfort [Recovered/Resolved]
